FAERS Safety Report 5034519-X (Version None)
Quarter: 2006Q2

REPORT INFORMATION
  Report Type: 
  Country: None (occurrence: None)
  Receive Date: 20060623
  Receipt Date: 20060623
  Transmission Date: 20061013
  Serious: Yes (Hospitalization)
  Sender: FDA-Public Use
  Company Number: None

PATIENT
  Age: 41 Year
  Sex: Female
  Weight: 46.1 kg

DRUGS (2)
  1. IRESSA [Suspect]
     Indication: BREAST CANCER METASTATIC
     Dosage: 250MG QD PO
     Route: 048
     Dates: start: 20050819, end: 20060618
  2. CAPECITABINE  ROCHE [Suspect]
     Indication: BREAST CANCER METASTATIC
     Dosage: 1500MG BID PO
     Route: 048
     Dates: start: 20050819, end: 20060618

REACTIONS (2)
  - PANCREATITIS ACUTE [None]
  - URINARY TRACT INFECTION [None]
